FAERS Safety Report 22089496 (Version 1)
Quarter: 2023Q1

REPORT INFORMATION
  Report Type: Spontaneous
  Country: US (occurrence: None)
  Receive Date: 20230311
  Receipt Date: 20230311
  Transmission Date: 20230418
  Serious: No
  Sender: FDA-Public Use
  Company Number: None

PATIENT
  Age: 45 Year
  Sex: Female
  Weight: 94.5 kg

DRUGS (1)
  1. PHESGO [Suspect]
     Active Substance: HYALURONIDASE-ZZXF\PERTUZUMAB\TRASTUZUMAB
     Indication: HER2 positive breast cancer
     Dates: start: 20230306, end: 20230306

REACTIONS (8)
  - Peripheral swelling [None]
  - Pruritus [None]
  - Palmar erythema [None]
  - Peripheral swelling [None]
  - Pain in extremity [None]
  - Pruritus [None]
  - Weight bearing difficulty [None]
  - Plantar erythema [None]

NARRATIVE: CASE EVENT DATE: 20230309
